FAERS Safety Report 8205553-3 (Version None)
Quarter: 2012Q1

REPORT INFORMATION
  Report Type: 
  Country: None (occurrence: None)
  Receive Date: 20120313
  Receipt Date: 20120229
  Transmission Date: 20120608
  Serious: Yes (Other)
  Sender: FDA-Public Use
  Company Number: GB-ELI_LILLY_AND_COMPANY-GB201108005580

PATIENT
  Age: 47 Year
  Sex: Male

DRUGS (10)
  1. CLOZAPINE [Concomitant]
     Indication: SCHIZOPHRENIA
     Dosage: 450 MG, QD
     Route: 048
     Dates: start: 20090728
  2. CLOZAPINE [Concomitant]
     Dosage: 400 MG, QD
     Route: 048
     Dates: start: 20110809, end: 20110908
  3. CLOZAPINE [Concomitant]
     Dosage: 350 MG, QD
     Route: 048
     Dates: start: 20110909
  4. CLOZAPINE [Concomitant]
     Dosage: 300 MG, BID
  5. CLOZAPINE [Concomitant]
     Dosage: 500 MG, QD
     Route: 048
     Dates: end: 20110808
  6. HYOSCINE                           /00008703/ [Concomitant]
     Indication: SALIVARY HYPERSECRETION
     Dosage: 300 UG, QD
     Route: 048
     Dates: start: 20090701
  7. CLOZAPINE [Concomitant]
     Dosage: 300 MG, BID
     Route: 048
  8. FLUOXETINE HCL [Suspect]
     Indication: OBSESSIVE-COMPULSIVE DISORDER
     Dosage: 40 MG, QD
     Dates: start: 20090701
  9. CLOZAPINE [Concomitant]
     Dosage: 550 MG, QD
     Route: 048
  10. OMEPRAZOLE [Concomitant]
     Indication: GASTROOESOPHAGEAL REFLUX DISEASE
     Dosage: 10 MG, QD
     Route: 048

REACTIONS (14)
  - COUGH [None]
  - PROTEIN TOTAL DECREASED [None]
  - DIARRHOEA [None]
  - GAMMA-GLUTAMYLTRANSFERASE INCREASED [None]
  - IMMUNODEFICIENCY [None]
  - LETHARGY [None]
  - DECREASED APPETITE [None]
  - CONSTIPATION [None]
  - HYPERHIDROSIS [None]
  - DRUG INTERACTION [None]
  - C-REACTIVE PROTEIN INCREASED [None]
  - WEIGHT DECREASED [None]
  - BLOOD ALKALINE PHOSPHATASE INCREASED [None]
  - ABDOMINAL PAIN [None]
